FAERS Safety Report 24614361 (Version 3)
Quarter: 2024Q4

REPORT INFORMATION
  Report Type: Spontaneous
  Country: US (occurrence: US)
  Receive Date: 20241113
  Receipt Date: 20241224
  Transmission Date: 20250115
  Serious: Yes (Other)
  Sender: CSL BEHRING
  Company Number: US-BEH-2024183906

PATIENT
  Sex: Female

DRUGS (1)
  1. HIZENTRA [Suspect]
     Active Substance: HUMAN IMMUNOGLOBULIN G
     Indication: Primary immunodeficiency syndrome
     Route: 058

REACTIONS (8)
  - Meningitis aseptic [Unknown]
  - Syncope [Unknown]
  - Migraine [Unknown]
  - Nausea [Unknown]
  - Infusion site pain [Unknown]
  - Palpitations [Unknown]
  - Dizziness [Unknown]
  - Treatment noncompliance [Unknown]
